FAERS Safety Report 6770503-3 (Version None)
Quarter: 2010Q2

REPORT INFORMATION
  Report Type: 
  Country: None (occurrence: None)
  Receive Date: 20100615
  Receipt Date: 20100610
  Transmission Date: 20101027
  Serious: Yes (Hospitalization)
  Sender: FDA-Public Use
  Company Number: FR-WYE-G06254010

PATIENT
  Sex: Male

DRUGS (7)
  1. TAZOCILLINE [Suspect]
     Indication: INFECTION
     Route: 042
     Dates: start: 20100505
  2. NEXIUM [Concomitant]
     Dosage: UNKNOWN
     Route: 042
     Dates: start: 20100403
  3. FOLINIC ACID [Concomitant]
     Indication: ANAEMIA
     Dosage: UNKNOWN
     Route: 042
  4. HEPARIN CALCIUM [Concomitant]
     Indication: THROMBOSIS
     Dosage: UNKNOWN
     Route: 042
     Dates: start: 20100423
  5. VANCOMYCIN HCL [Concomitant]
     Indication: INFECTION
     Dosage: UNKNOWN
     Route: 042
     Dates: start: 20100426
  6. VENOFER [Suspect]
     Indication: ANAEMIA
     Dosage: ONE DOSE OF 100 MG ON THE FIRST DAY AT 6 PM AND THEN, UNKNOWN DOSE AND FREQUENCY
     Route: 042
     Dates: start: 20100505, end: 20100501
  7. TIMOPTOL [Concomitant]
     Indication: EYE DISORDER
     Dosage: UNKNOWN
     Route: 047
     Dates: start: 20100416

REACTIONS (1)
  - GENERALISED ERYTHEMA [None]
